FAERS Safety Report 9517434 (Version 2)
Quarter: 2014Q1

REPORT INFORMATION
  Report Type: Report from Study
  Country: JP (occurrence: JP)
  Receive Date: 20130911
  Receipt Date: 20140324
  Transmission Date: 20141002
  Serious: Yes (Death)
  Sender: FDA-Public Use
  Company Number: JP-UCBSA-096483

PATIENT
  Age: 43 Year
  Sex: Male
  Weight: 53 kg

DRUGS (2)
  1. E KEPPRA [Suspect]
     Indication: PARTIAL SEIZURES WITH SECONDARY GENERALISATION
     Route: 048
     Dates: start: 20120708, end: 20121104
  2. SODIUM VALPROATE SR [Concomitant]
     Indication: EPILEPSY
     Dosage: DAILY DOSE: 1200 MG
     Route: 048
     Dates: end: 20120920

REACTIONS (1)
  - Cerebral infarction [Fatal]
